FAERS Safety Report 6601348-2 (Version None)
Quarter: 2010Q1

REPORT INFORMATION
  Report Type: 
  Country: None (occurrence: None)
  Receive Date: 20100225
  Receipt Date: 20100223
  Transmission Date: 20100710
  Serious: Yes (Other)
  Sender: FDA-Public Use
  Company Number: FR-SANOFI-AVENTIS-2010SA010258

PATIENT
  Age: 72 Year
  Sex: Female

DRUGS (2)
  1. RIFADIN [Suspect]
     Route: 042
     Dates: start: 20100121, end: 20100124
  2. TARGOCID [Suspect]
     Route: 042
     Dates: start: 20100121, end: 20100124

REACTIONS (2)
  - C-REACTIVE PROTEIN INCREASED [None]
  - PYREXIA [None]
